FAERS Safety Report 5854668-3 (Version None)
Quarter: 2008Q3

REPORT INFORMATION
  Report Type: 
  Country: None (occurrence: None)
  Receive Date: 20080822
  Receipt Date: 20080811
  Transmission Date: 20090109
  Serious: Yes (Other)
  Sender: FDA-Public Use
  Company Number: US-PFIZER INC-2008067344

PATIENT
  Sex: Female
  Weight: 60.3 kg

DRUGS (14)
  1. CHANTIX [Suspect]
     Indication: SMOKING CESSATION THERAPY
  2. ATENOLOL [Concomitant]
  3. ESGIC-PLUS [Concomitant]
  4. GEMFIBROZIL [Concomitant]
  5. LISINOPRIL [Concomitant]
  6. METHADONE HCL [Concomitant]
  7. METHIMAZOLE [Concomitant]
  8. PRILOSEC [Concomitant]
  9. CYMBALTA [Concomitant]
  10. SOMA [Concomitant]
  11. ACETYLSALICYLIC ACID SRT [Concomitant]
  12. CALCIUM [Concomitant]
  13. MULTI-VITAMINS [Concomitant]
  14. PROAIR HFA [Concomitant]
     Indication: CHRONIC OBSTRUCTIVE PULMONARY DISEASE

REACTIONS (1)
  - SELF-INJURIOUS IDEATION [None]
